FAERS Safety Report 5239097-8 (Version None)
Quarter: 2007Q1

REPORT INFORMATION
  Report Type: 
  Country: None (occurrence: None)
  Receive Date: 20070209
  Receipt Date: 20070130
  Transmission Date: 20070707
  Serious: Yes (Death)
  Sender: FDA-Public Use
  Company Number: 235933

PATIENT
  Age: 60 Year
  Sex: Female

DRUGS (4)
  1. MABTHERA(RITUXIMAB) CONC FOR SOLUTION FOR INFUSION [Suspect]
     Indication: CRYOGLOBULINAEMIA
     Dosage: 375 MG/M2, 1/WEEK, INTRAVENOUS
     Route: 042
  2. MYCOPHENOLATE MOFETIL [Concomitant]
  3. TACROLIMUS (TACROLIMUS) [Concomitant]
  4. CORTICOSTEROIDS (UNK INGREDIENTS) (CORTICOSTEROID NOS) [Concomitant]

REACTIONS (4)
  - BACTERIAL INFECTION [None]
  - CRYPTOCOCCOSIS [None]
  - ENCEPHALITIS [None]
  - FASCIITIS [None]
